FAERS Safety Report 4868607-5 (Version None)
Quarter: 2005Q4

REPORT INFORMATION
  Report Type: 
  Country: None (occurrence: None)
  Receive Date: 20051223
  Receipt Date: 20051214
  Transmission Date: 20060501
  Serious: Yes (Life-Threatening, Hospitalization)
  Sender: FDA-Public Use
  Company Number: 12776

PATIENT
  Age: 60 Year
  Sex: Female

DRUGS (8)
  1. METHOTREXATE [Suspect]
     Dates: start: 20050726, end: 20050921
  2. METHOTREXATE [Suspect]
     Dosage: 15 MG WEEKLY
     Dates: start: 20050922
  3. ENBREL [Suspect]
     Indication: RHEUMATOID ARTHRITIS
     Dosage: 50 MG WEEKLY SC
     Route: 058
     Dates: start: 20050726, end: 20051004
  4. ENBREL [Suspect]
     Indication: RHEUMATOID ARTHRITIS
     Dosage: 50 MG WEEKLY SC
     Route: 058
     Dates: start: 20051011
  5. PARACETAMOL [Concomitant]
  6. DICLOFENAC [Concomitant]
  7. CODEINE [Concomitant]
  8. FOLIC ACID [Concomitant]

REACTIONS (9)
  - BLOOD GLUCOSE INCREASED [None]
  - CARDIAC ARREST [None]
  - CORONARY ARTERY OCCLUSION [None]
  - ELECTROCARDIOGRAM ST SEGMENT ELEVATION [None]
  - HAEMOGLOBIN DECREASED [None]
  - MEAN ARTERIAL PRESSURE INCREASED [None]
  - MYOCARDIAL INFARCTION [None]
  - POST PROCEDURAL COMPLICATION [None]
  - VENTRICULAR TACHYCARDIA [None]
